FAERS Safety Report 9648678 (Version 4)
Quarter: 2013Q4

REPORT INFORMATION
  Report Type: Spontaneous
  Country: IT (occurrence: IT)
  Receive Date: 20131028
  Receipt Date: 20131218
  Transmission Date: 20140711
  Serious: Yes (Hospitalization)
  Sender: FDA-Public Use
  Company Number: IT-PFIZER INC-2013304175

PATIENT
  Age: 74 Year
  Sex: Male
  Weight: 97 kg

DRUGS (11)
  1. ADRIBLASTINA [Suspect]
     Indication: B-CELL LYMPHOMA
     Dosage: 80.62 MG, CYCLIC
     Route: 040
     Dates: start: 20130416, end: 20130528
  2. MABTHERA [Suspect]
     Indication: B-CELL LYMPHOMA
     Dosage: 802.7 MG, CYCLIC
     Route: 042
     Dates: start: 20130415, end: 20130528
  3. VINCRISTINA CRINOS [Suspect]
     Indication: B-CELL LYMPHOMA
     Dosage: 2 MG, CYCLIC
     Route: 040
     Dates: start: 20130416, end: 20130528
  4. DELTACORTENE [Suspect]
     Indication: B-CELL LYMPHOMA
     Dosage: 75 MG, CYCLIC
     Route: 048
     Dates: start: 20130417, end: 20130601
  5. ENDOXAN-BAXTER [Suspect]
     Indication: B-CELL LYMPHOMA
     Dosage: 1612 MG, CYCLIC
     Route: 040
     Dates: start: 20130416, end: 20130528
  6. PEGFILGRASTIM [Concomitant]
     Indication: FEBRILE NEUTROPENIA
     Dosage: 6 MG, UNK
     Route: 058
     Dates: start: 20130416, end: 20130529
  7. ALLOPURINOL [Concomitant]
     Indication: HYPERURICAEMIA
     Dosage: 300 MG, UNK
     Route: 048
     Dates: start: 20130327, end: 20130826
  8. CLEXANE [Concomitant]
     Indication: THROMBOSIS PROPHYLAXIS
     Dosage: 1 DF, UNK
     Route: 058
     Dates: start: 20130508, end: 20130628
  9. ACICLOVIR [Concomitant]
     Indication: ANTIVIRAL PROPHYLAXIS
     Dosage: 800 MG, UNK
     Route: 048
     Dates: start: 20130528, end: 20130826
  10. PANTORC [Concomitant]
     Indication: GASTROOESOPHAGEAL REFLUX DISEASE
     Dosage: 40 MG, UNK
     Route: 048
     Dates: start: 20130327, end: 20130826
  11. NORVASC [Concomitant]
     Indication: HYPERTENSION
     Dosage: 5 MG, UNK
     Route: 048
     Dates: start: 20130327, end: 20130826

REACTIONS (4)
  - Sepsis [Recovered/Resolved]
  - Acute respiratory failure [Recovered/Resolved]
  - Febrile neutropenia [Recovered/Resolved]
  - Pneumonia [Recovered/Resolved]
